FAERS Safety Report 8459614-4 (Version None)
Quarter: 2012Q2

REPORT INFORMATION
  Report Type: 
  Country: None (occurrence: None)
  Receive Date: 20120622
  Receipt Date: 20120608
  Transmission Date: 20120825
  Serious: Yes (Life-Threatening, Other)
  Sender: FDA-Public Use
  Company Number: CA-GLAXOSMITHKLINE-A0980520A

PATIENT
  Sex: Female
  Weight: 85.9 kg

DRUGS (5)
  1. ADVAIR DISKUS 100/50 [Suspect]
     Indication: ASTHMA
     Dosage: 1PUFF TWICE PER DAY
     Route: 055
     Dates: start: 20120327, end: 20120609
  2. NORVASC [Concomitant]
     Indication: HYPERTENSION
     Dosage: 5MG UNKNOWN
     Route: 048
  3. OMEPRAZOLE [Concomitant]
     Indication: HIATUS HERNIA
     Dosage: 20MG UNKNOWN
     Route: 048
  4. VENTOLIN [Concomitant]
     Route: 065
  5. MICARDIS [Concomitant]
     Indication: HYPERTENSION
     Dosage: 1TAB UNKNOWN
     Route: 048

REACTIONS (3)
  - PARAESTHESIA ORAL [None]
  - DYSPNOEA [None]
  - DYSPHONIA [None]
